FAERS Safety Report 9856974 (Version 1)
Quarter: 2014Q1

REPORT INFORMATION
  Report Type: Spontaneous
  Country: GB (occurrence: None)
  Receive Date: 20140128
  Receipt Date: 20140128
  Transmission Date: 20141002
  Serious: Yes (Hospitalization)
  Sender: FDA-Public Use
  Company Number: B0923898A

PATIENT
  Age: 64 Year
  Sex: Male
  Weight: 69.85 kg

DRUGS (7)
  1. PAROXETINE HYDROCHLORIDE [Suspect]
     Route: 048
  2. OLANZAPINE (OLANZAPINE) [Suspect]
     Indication: SCHIZOPHRENIA
     Route: 048
     Dates: end: 20130830
  3. AMISULPRIDE (AMISULPRIDE) [Suspect]
     Indication: SCHIZOPHRENIA
     Route: 048
     Dates: end: 20130829
  4. METFORMIN HYDROCHLORIDE [Concomitant]
  5. PIOGLITAZONE [Concomitant]
  6. SIMVASTATIN [Concomitant]
  7. ZOPICLONE [Concomitant]

REACTIONS (3)
  - Neuroleptic malignant syndrome [None]
  - Fall [None]
  - Blood creatine phosphokinase increased [None]
